FAERS Safety Report 4582764-X (Version None)
Quarter: 2005Q1

REPORT INFORMATION
  Report Type: 
  Country: None (occurrence: None)
  Receive Date: 20050121
  Receipt Date: 20041018
  Transmission Date: 20050727
  Serious: Yes (Other)
  Sender: FDA-Public Use
  Company Number: 2004067907

PATIENT
  Age: 39 Year
  Sex: Female

DRUGS (4)
  1. RELPAX [Suspect]
     Indication: MIGRAINE
     Dosage: 40 MG (40 MG, ONCE),ORAL
     Route: 048
     Dates: start: 20040701
  2. TOPIRAMATE [Concomitant]
  3. ESCITALOPRAM (ESCITALOPRAM) [Concomitant]
  4. MONTELUKAST (MONTELUKAST) [Concomitant]

REACTIONS (5)
  - BALANCE DISORDER [None]
  - DIZZINESS [None]
  - FEELING ABNORMAL [None]
  - LETHARGY [None]
  - SEDATION [None]
